FAERS Safety Report 12553944 (Version 1)
Quarter: 2016Q3

REPORT INFORMATION
  Report Type: Spontaneous
  Country: CA (occurrence: CA)
  Receive Date: 20160713
  Receipt Date: 20160713
  Transmission Date: 20161109
  Serious: Yes (Other)
  Sender: FDA-Public Use
  Company Number: CA-HQ SPECIALTY-CA-2016INT000537

PATIENT
  Age: 18 Year
  Sex: Female

DRUGS (22)
  1. ENBREL [Suspect]
     Active Substance: ETANERCEPT
     Dosage: 50 MG, 1 W
     Route: 058
  2. ARAVA [Suspect]
     Active Substance: LEFLUNOMIDE
     Indication: RHEUMATOID ARTHRITIS
     Dosage: 10 MG,1 D
     Dates: start: 20131007
  3. NAPROSYN [Concomitant]
     Active Substance: NAPROXEN
     Indication: PRODUCT USED FOR UNKNOWN INDICATION
     Dosage: 375 MG, 1 D (AS NEEDED)
  4. DEPO-MEDROL [Concomitant]
     Active Substance: METHYLPREDNISOLONE ACETATE
     Indication: PRODUCT USED FOR UNKNOWN INDICATION
     Dosage: 60 MG, UNK
  5. SIMPONI [Suspect]
     Active Substance: GOLIMUMAB
     Indication: RHEUMATOID ARTHRITIS
     Dosage: 50 MG,1 MO
     Route: 058
     Dates: start: 2010, end: 20160520
  6. METHOTREXATE SODIUM. [Suspect]
     Active Substance: METHOTREXATE SODIUM
     Dosage: 3.5714 MG (25 MG,1 IN 1 W)
     Route: 058
     Dates: start: 2002, end: 2005
  7. METHOTREXATE SODIUM. [Suspect]
     Active Substance: METHOTREXATE SODIUM
     Dosage: 3.5714 MG (25 MG,1 IN 1 W)
     Route: 058
     Dates: start: 20050912, end: 20100804
  8. NAPROSYN [Concomitant]
     Active Substance: NAPROXEN
     Dosage: 375 MG,  2 IN 1 D (AS NEEDED)
     Dates: start: 20080912
  9. FOLIC ACID. [Concomitant]
     Active Substance: FOLIC ACID
     Indication: PRODUCT USED FOR UNKNOWN INDICATION
     Dosage: 1 MG 6 DAYS PER WEEK
     Dates: end: 20090619
  10. ENBREL [Suspect]
     Active Substance: ETANERCEPT
     Indication: RHEUMATOID ARTHRITIS
     Dosage: 7.1429 MG (25 MG, 2 IN 1 W)
     Route: 058
     Dates: start: 200501
  11. METHOTREXATE SODIUM. [Suspect]
     Active Substance: METHOTREXATE SODIUM
     Dosage: 2.8571 (20 MG,1 IN 1 W)
     Route: 058
     Dates: start: 2005, end: 20050912
  12. METHOTREXATE SODIUM. [Suspect]
     Active Substance: METHOTREXATE SODIUM
     Dosage: 2.5 MG (17.5 MG,1 IN 1 W)
     Route: 058
     Dates: start: 20100804
  13. METHOTREXATE SODIUM. [Suspect]
     Active Substance: METHOTREXATE SODIUM
     Dosage: 17.5
     Dates: start: 2003
  14. ENBREL [Suspect]
     Active Substance: ETANERCEPT
     Dosage: 25 MG, 1 W
     Route: 058
  15. FOLIC ACID. [Concomitant]
     Active Substance: FOLIC ACID
     Dosage: 5 MG, 2 IN 1 W
     Dates: start: 20090619
  16. ENBREL [Suspect]
     Active Substance: ETANERCEPT
     Dosage: 7.1429 MG (25 MG,2 IN 1 W)
     Route: 058
     Dates: end: 200809
  17. ENBREL [Suspect]
     Active Substance: ETANERCEPT
     Dosage: UNK
     Dates: start: 2008, end: 2009
  18. RITUXIMAB [Suspect]
     Active Substance: RITUXIMAB
     Indication: RHEUMATOID ARTHRITIS
     Dosage: UNK
  19. METHOTREXATE SODIUM. [Suspect]
     Active Substance: METHOTREXATE SODIUM
     Indication: RHEUMATOID ARTHRITIS
     Dosage: UNK
     Route: 048
  20. METHOTREXATE SODIUM. [Suspect]
     Active Substance: METHOTREXATE SODIUM
     Dosage: 3.5714 (25 MG,1 IN 1 W)
     Route: 058
     Dates: start: 20131007
  21. ENBREL [Suspect]
     Active Substance: ETANERCEPT
     Dosage: 25 MG, 1 W
     Route: 058
     Dates: start: 20080912
  22. ACTEMRA [Suspect]
     Active Substance: TOCILIZUMAB
     Indication: RHEUMATOID ARTHRITIS
     Dosage: MONTHLY INFUSIONS
     Dates: start: 2013

REACTIONS (2)
  - Drug ineffective [Unknown]
  - Rheumatoid arthritis [Unknown]
